FAERS Safety Report 9947563 (Version 1)
Quarter: 2014Q1

REPORT INFORMATION
  Report Type: Report from Study
  Country: US (occurrence: US)
  Receive Date: 20140303
  Receipt Date: 20140303
  Transmission Date: 20141002
  Serious: No
  Sender: FDA-Public Use
  Company Number: US-ABBVIE-13P-163-1065010-00

PATIENT
  Age: 55 Year
  Sex: Female

DRUGS (7)
  1. HUMIRA [Suspect]
     Indication: PSORIASIS
     Dosage: LOADING DOSE
     Dates: start: 20130308
  2. METOPROLOL [Concomitant]
     Indication: BLOOD PRESSURE
  3. LOSARTAN POT [Concomitant]
     Indication: BLOOD PRESSURE
  4. HYDROCHLOROTH [Concomitant]
     Indication: BLOOD PRESSURE
  5. OMEPRAZOLE [Concomitant]
     Indication: HIATUS HERNIA
  6. EFFERVESCENT POTASSIUM CHLOR [Concomitant]
     Indication: BLOOD POTASSIUM DECREASED
     Dosage: 25 MEQ E F TAB QUAL DAILY
  7. PREDNISONE [Concomitant]
     Indication: PSORIASIS

REACTIONS (4)
  - Ear infection [Not Recovered/Not Resolved]
  - Inappropriate schedule of drug administration [Unknown]
  - Hypoacusis [Not Recovered/Not Resolved]
  - Ear pain [Not Recovered/Not Resolved]
